FAERS Safety Report 9443801 (Version 2)
Quarter: 2013Q3

REPORT INFORMATION
  Report Type: Spontaneous
  Country: GB (occurrence: GB)
  Receive Date: 20130806
  Receipt Date: 20130822
  Transmission Date: 20140515
  Serious: Yes (Hospitalization, Other)
  Sender: FDA-Public Use
  Company Number: GB-B.I. PHARMACEUTICALS,INC./RIDGEFIELD-2013-UK-01595UK

PATIENT
  Age: 60 Year
  Sex: Male

DRUGS (10)
  1. PRADAXA [Suspect]
     Indication: CEREBROVASCULAR ACCIDENT PROPHYLAXIS
     Dosage: 300 MG
     Route: 048
     Dates: start: 201305
  2. BISOPROLOL [Concomitant]
     Dosage: 5 MG
     Route: 048
  3. ARYTHMOL [Concomitant]
     Dosage: 450 MG
  4. ALLOPURINOL [Concomitant]
     Dosage: 200 MG
     Route: 048
  5. PROPAFENONE [Concomitant]
     Dosage: 450 MG
     Route: 048
  6. ESOMEPRAZOLE [Concomitant]
     Dosage: 20 MG
  7. KETOCONAZOLE 2% SHAMPOO [Concomitant]
     Dosage: 1-2 TIMES A WEEK AS DIRECTED
  8. CALCIPOTRIOL 0.005%/BETAMETHASONE DIPROPIONATE 0.05% GEL [Concomitant]
     Dosage: AS DIRECTED
  9. CAPASAL THERAPEUTIC SHAMPOO [Concomitant]
     Dosage: USE DAILY
  10. ASPIRIN [Concomitant]
     Dosage: 150 MG

REACTIONS (5)
  - Chest pain [Unknown]
  - Throat irritation [Unknown]
  - Dyspepsia [Not Recovered/Not Resolved]
  - Gastritis [Unknown]
  - Arthralgia [Unknown]
